FAERS Safety Report 16347114 (Version 1)
Quarter: 2019Q2

REPORT INFORMATION
  Report Type: Spontaneous
  Country: US (occurrence: US)
  Receive Date: 20190523
  Receipt Date: 20190523
  Transmission Date: 20190711
  Serious: No
  Sender: FDA-Public Use
  Company Number: US-TARO-2019TAR00293

PATIENT
  Sex: Female
  Weight: 102.04 kg

DRUGS (7)
  1. HYDROCHLOROTHIAZIDE. [Concomitant]
     Active Substance: HYDROCHLOROTHIAZIDE
     Dosage: 25 MG, 1X/DAY
  2. NOVOLOG [Concomitant]
     Active Substance: INSULIN ASPART
     Dosage: 10-12 UNITS BEFORE EACH MEAL, 3X/DAY
  3. CLORAZEPATE DIPOTASSIUM TABLETS USP 7.5 MG [Suspect]
     Active Substance: CLORAZEPATE DIPOTASSIUM
     Dosage: 3.75 MG 1X/DAY IN THE MORNING
     Route: 048
     Dates: start: 2019
  4. PROPRANOLOL ER [Concomitant]
     Active Substance: PROPRANOLOL HYDROCHLORIDE
     Dosage: 120 MG, 1X/DAY
  5. POTASSIUM CHLORIDE ER [Concomitant]
     Active Substance: POTASSIUM CHLORIDE
     Dosage: 20 MEQ, 1X/DAY
  6. CLORAZEPATE DIPOTASSIUM TABLETS USP 7.5 MG [Suspect]
     Active Substance: CLORAZEPATE DIPOTASSIUM
     Indication: ANXIETY
     Dosage: 7.5 MG, 1X/DAY IN THE MORNING
     Route: 048
     Dates: start: 201903, end: 2019
  7. LANTUS SOLOSTAR [Concomitant]
     Active Substance: INSULIN GLARGINE
     Dosage: 38 UNITS, 1X/DAY BEFORE BED

REACTIONS (7)
  - Feeling abnormal [Recovering/Resolving]
  - Nausea [Not Recovered/Not Resolved]
  - Dysarthria [Unknown]
  - Fatigue [Recovering/Resolving]
  - Diarrhoea [Not Recovered/Not Resolved]
  - Product substitution issue [Not Recovered/Not Resolved]
  - Therapeutic product effect incomplete [Not Recovered/Not Resolved]

NARRATIVE: CASE EVENT DATE: 2019
